FAERS Safety Report 8486503-1 (Version None)
Quarter: 2012Q3

REPORT INFORMATION
  Report Type: 
  Country: None (occurrence: None)
  Receive Date: 20120703
  Receipt Date: 20120629
  Transmission Date: 20120928
  Serious: No
  Sender: FDA-Public Use
  Company Number: US-PFIZER INC-2012157543

PATIENT
  Sex: Female

DRUGS (2)
  1. PRISTIQ [Suspect]
     Indication: MENOPAUSAL SYMPTOMS
     Dosage: 100 MG, UNK
  2. PRISTIQ [Suspect]
     Dosage: 50 MG, UNK

REACTIONS (1)
  - INCORRECT DRUG DOSAGE FORM ADMINISTERED [None]
